FAERS Safety Report 10047512 (Version 1)
Quarter: 2014Q1

REPORT INFORMATION
  Report Type: Spontaneous
  Country: GB (occurrence: GB)
  Receive Date: 20140331
  Receipt Date: 20140331
  Transmission Date: 20141002
  Serious: Yes (Other)
  Sender: FDA-Public Use
  Company Number: GB-MERCK-1403GBR012787

PATIENT
  Age: 67 Year
  Sex: Male
  Weight: 96.4 kg

DRUGS (9)
  1. SITAGLIPTIN PHOSPHATE [Suspect]
     Dates: start: 20140207, end: 20140307
  2. ALFUZOSIN HYDROCHLORIDE [Concomitant]
     Dates: start: 20131209, end: 20140201
  3. ALMOTRIPTAN [Concomitant]
     Dates: start: 20140102, end: 20140103
  4. ATORVASTATIN [Concomitant]
     Dates: start: 20131209, end: 20140310
  5. METFORMIN [Concomitant]
     Dates: start: 20131209, end: 20140310
  6. RAMIPRIL [Concomitant]
     Dates: start: 20131209, end: 20140310
  7. SILDENAFIL CITRATE [Concomitant]
     Dates: start: 20140103, end: 20140118
  8. SOLIFENACIN SUCCINATE [Concomitant]
     Dates: start: 20131209, end: 20140312
  9. ZAPAIN [Concomitant]
     Dates: start: 20131209, end: 20131221

REACTIONS (1)
  - Eczema [Recovered/Resolved]
